FAERS Safety Report 5599645-5 (Version None)
Quarter: 2008Q1

REPORT INFORMATION
  Report Type: 
  Country: None (occurrence: None)
  Receive Date: 20080118
  Receipt Date: 20080111
  Transmission Date: 20080703
  Serious: Yes (Other)
  Sender: FDA-Public Use
  Company Number: 144-C5013-08010680

PATIENT
  Age: 67 Year
  Sex: Female

DRUGS (1)
  1. CC-5013 (LENALIDOMIDE) (CAPSULES) [Suspect]
     Indication: 5Q-SYNDROME
     Dosage: 1 IN 1 D ORAL
     Route: 048

REACTIONS (2)
  - EOSINOPHILIA [None]
  - MYELOPROLIFERATIVE DISORDER [None]
